FAERS Safety Report 7095752-9 (Version None)
Quarter: 2010Q4

REPORT INFORMATION
  Report Type: 
  Country: None (occurrence: None)
  Receive Date: 20101111
  Receipt Date: 20090211
  Transmission Date: 20110411
  Serious: No
  Sender: FDA-Public Use
  Company Number: US-KINGPHARMUSA00001-K200900134

PATIENT
  Sex: Male
  Weight: 71.655 kg

DRUGS (6)
  1. SKELAXIN [Suspect]
     Indication: NECK PAIN
     Dosage: 800 MG, TID
     Route: 048
     Dates: start: 20090130, end: 20090205
  2. COUMADIN [Suspect]
     Indication: ATRIAL FIBRILLATION
     Dosage: 5 MG, QD
     Route: 048
  3. PROSCAR [Concomitant]
     Indication: PROSTATOMEGALY
     Dosage: 5 MG, QD
     Route: 048
  4. CARTIA XT                          /00489701/ [Concomitant]
     Indication: HYPERTENSION
     Dosage: 180 MG, QD
     Route: 048
  5. CARTIA XT                          /00489701/ [Concomitant]
     Indication: ATRIAL FIBRILLATION
  6. XANAX [Concomitant]
     Indication: ANXIETY
     Dosage: 0.125 MG, QD
     Route: 048

REACTIONS (1)
  - PROTHROMBIN TIME PROLONGED [None]
